FAERS Safety Report 6468144-0 (Version None)
Quarter: 2009Q4

REPORT INFORMATION
  Report Type: 
  Country: None (occurrence: None)
  Receive Date: 20091127
  Receipt Date: 20091116
  Transmission Date: 20100525
  Serious: Yes (Hospitalization, Other)
  Sender: FDA-Public Use
  Company Number: 2009-04829

PATIENT
  Age: 70 Year
  Sex: Female

DRUGS (5)
  1. VELCADE [Suspect]
     Indication: MULTIPLE MYELOMA
     Dates: end: 20091105
  2. CIPROFLOXACIN [Suspect]
     Indication: PNEUMONIA
     Dates: start: 20091029, end: 20091104
  3. PREDNISONE [Concomitant]
  4. MELPHALAN [Concomitant]
  5. OMEPRAZOLE [Concomitant]

REACTIONS (4)
  - CUTANEOUS VASCULITIS [None]
  - RASH MACULO-PAPULAR [None]
  - THROMBOCYTOPENIA [None]
  - TOXIC SKIN ERUPTION [None]
